FAERS Safety Report 4846841-8 (Version None)
Quarter: 2005Q4

REPORT INFORMATION
  Report Type: 
  Country: None (occurrence: None)
  Receive Date: 20051207
  Receipt Date: 20051123
  Transmission Date: 20060501
  Serious: Yes (Hospitalization, Other)
  Sender: FDA-Public Use
  Company Number: PHRM2005FR03047

PATIENT
  Age: 91 Year
  Sex: Female

DRUGS (6)
  1. PIASCLEDINE [Concomitant]
     Route: 048
  2. OROCAL [Concomitant]
     Route: 048
  3. TANAKAN [Concomitant]
     Route: 048
  4. DITROPAN [Concomitant]
     Route: 048
  5. DIFFU K [Concomitant]
     Route: 048
  6. BRIAZIDE [Suspect]
     Indication: HYPERTENSION
     Dosage: 1 DF, QD
     Route: 048
     Dates: end: 20050907

REACTIONS (10)
  - BLOOD CREATININE INCREASED [None]
  - CREATININE RENAL CLEARANCE DECREASED [None]
  - DISCOMFORT [None]
  - FAECAL INCONTINENCE [None]
  - MALAISE [None]
  - ORTHOSTATIC HYPOTENSION [None]
  - PALLOR [None]
  - RENAL FAILURE [None]
  - SYNCOPE [None]
  - URINARY INCONTINENCE [None]
